FAERS Safety Report 25872124 (Version 1)
Quarter: 2025Q4

REPORT INFORMATION
  Report Type: Report from Study
  Country: IN (occurrence: IN)
  Receive Date: 20251002
  Receipt Date: 20251002
  Transmission Date: 20260119
  Serious: Yes (Other)
  Sender: ROCHE
  Company Number: IN-ROCHE-10000400394

PATIENT
  Age: 78 Year
  Sex: Male
  Weight: 61.2 kg

DRUGS (1)
  1. POLIVY [Suspect]
     Active Substance: POLATUZUMAB VEDOTIN-PIIQ
     Indication: Diffuse large B-cell lymphoma
     Route: 042
     Dates: start: 20250628

REACTIONS (1)
  - Disease progression [Unknown]
